FAERS Safety Report 16286545 (Version 3)
Quarter: 2019Q2

REPORT INFORMATION
  Report Type: Spontaneous
  Country: US (occurrence: US)
  Receive Date: 20190508
  Receipt Date: 20190516
  Transmission Date: 20190711
  Serious: No
  Sender: FDA-Public Use
  Company Number: US-PFIZER INC-2019190116

PATIENT
  Age: 82 Year
  Sex: Female
  Weight: 59 kg

DRUGS (1)
  1. ESTRING [Suspect]
     Active Substance: ESTRADIOL
     Indication: INCONTINENCE
     Dosage: 2 MG; ONE RING INTERVAGINALLY EVERY 3 MONTHS
     Route: 067
     Dates: start: 2018

REACTIONS (3)
  - Product use in unapproved indication [Unknown]
  - Cystitis [Unknown]
  - Off label use [Unknown]
